FAERS Safety Report 8129460-X (Version None)
Quarter: 2012Q1

REPORT INFORMATION
  Report Type: 
  Country: None (occurrence: None)
  Receive Date: 20120210
  Receipt Date: 20120129
  Transmission Date: 20120608
  Serious: Yes (Death, Other)
  Sender: FDA-Public Use
  Company Number: ES-CELGENEUS-144-50794-12013078

PATIENT
  Sex: Male

DRUGS (3)
  1. VIDAZA [Suspect]
     Route: 065
  2. HYDROXYUREA [Concomitant]
     Dosage: 1 GRAM
     Route: 065
     Dates: start: 20091220, end: 20100111
  3. DARBEPOETIN [Concomitant]
     Route: 065
     Dates: start: 20100101

REACTIONS (3)
  - NEUTROPENIA [None]
  - CHRONIC MYELOMONOCYTIC LEUKAEMIA [None]
  - ACUTE MYELOID LEUKAEMIA [None]
